FAERS Safety Report 11307513 (Version 1)
Quarter: 2015Q3

REPORT INFORMATION
  Report Type: Other
  Country: FR (occurrence: FR)
  Receive Date: 20150723
  Receipt Date: 20150723
  Transmission Date: 20151125
  Serious: Yes (Other)
  Sender: FDA-Public Use
  Company Number: FR-MYLANLABS-2015M1024334

PATIENT

DRUGS (9)
  1. ZOVIRAX [Suspect]
     Active Substance: ACYCLOVIR
     Indication: STOMATITIS
     Dosage: 5 MG/KG, QD
     Route: 042
     Dates: start: 20150610
  2. VANCOMYCIN HYDROCHLORIDE. [Suspect]
     Active Substance: VANCOMYCIN HYDROCHLORIDE
     Indication: FEBRILE BONE MARROW APLASIA
     Dosage: 500 MG, QD
     Route: 042
     Dates: start: 20150608, end: 20150610
  3. TAZOCILLINE [Suspect]
     Active Substance: PIPERACILLIN SODIUM\TAZOBACTAM SODIUM
     Indication: FEBRILE BONE MARROW APLASIA
     Dosage: 1 G, QID
     Route: 042
     Dates: start: 20150602, end: 20150610
  4. ROVAMYCINE                         /00074401/ [Suspect]
     Active Substance: SPIRAMYCIN
     Indication: LUNG DISORDER
  5. CANCIDAS [Suspect]
     Active Substance: CASPOFUNGIN ACETATE
     Indication: FEBRILE BONE MARROW APLASIA
     Dosage: 70 MG, QD
     Route: 042
     Dates: start: 20150610, end: 20150617
  6. TIENAM [Suspect]
     Active Substance: CILASTATIN SODIUM\IMIPENEM
     Indication: FEBRILE BONE MARROW APLASIA
     Dosage: 500 MG, TID
     Route: 042
     Dates: start: 20150610, end: 20150617
  7. ROVAMYCINE                         /00074401/ [Suspect]
     Active Substance: SPIRAMYCIN
     Indication: FEBRILE BONE MARROW APLASIA
     Dosage: 1.5 MILLION IU, TID
     Route: 042
     Dates: start: 20150607, end: 20150616
  8. ZYVOX [Suspect]
     Active Substance: LINEZOLID
     Indication: FEBRILE BONE MARROW APLASIA
     Dosage: 600 MG, QD
     Route: 042
     Dates: start: 20150610, end: 20150617
  9. ZOVIRAX [Suspect]
     Active Substance: ACYCLOVIR
     Dosage: 50 MG, BID
     Route: 048

REACTIONS (4)
  - Rash maculo-papular [Recovered/Resolved]
  - Punctate keratitis [Recovered/Resolved]
  - Herpes simplex [Unknown]
  - Bacillus infection [Unknown]

NARRATIVE: CASE EVENT DATE: 201506
